FAERS Safety Report 6241385-3 (Version None)
Quarter: 2009Q2

REPORT INFORMATION
  Report Type: 
  Country: None (occurrence: None)
  Receive Date: 20090623
  Receipt Date: 20090611
  Transmission Date: 20091009
  Serious: Yes (Other)
  Sender: FDA-Public Use
  Company Number: AU-SANOFI-SYNTHELABO-A01200802754

PATIENT
  Age: 23 Year
  Sex: Female

DRUGS (7)
  1. COCAINE [Concomitant]
     Indication: DRUG ABUSE
     Dosage: UNK
     Route: 065
  2. VALIUM [Concomitant]
     Indication: DEPRESSION
     Route: 065
  3. VALIUM [Concomitant]
     Indication: ANXIETY
     Route: 065
  4. XANAX [Concomitant]
     Indication: DEPRESSION
     Route: 065
  5. XANAX [Concomitant]
     Indication: ANXIETY
     Route: 065
  6. ZOLPIDEM TARTRATE [Suspect]
     Indication: DEPRESSION
     Route: 065
  7. ZOLPIDEM TARTRATE [Suspect]
     Indication: ANXIETY
     Route: 065

REACTIONS (2)
  - JUDGEMENT IMPAIRED [None]
  - VERBAL ABUSE [None]
